FAERS Safety Report 21210337 (Version 1)
Quarter: 2022Q3

REPORT INFORMATION
  Report Type: Spontaneous
  Country: US (occurrence: US)
  Receive Date: 20220815
  Receipt Date: 20220815
  Transmission Date: 20221027
  Serious: Yes (Hospitalization)
  Sender: FDA-Public Use
  Company Number: US-AMGEN-USASP2022138148

PATIENT
  Age: 60 Year
  Sex: Male

DRUGS (2)
  1. OTEZLA [Suspect]
     Active Substance: APREMILAST
     Indication: Psoriasis
     Dosage: 10 + 20+ 30 MG AS DIRECTED PER PACKAGE
     Route: 048
     Dates: start: 20220706
  2. COSENTYX [Concomitant]
     Active Substance: SECUKINUMAB
     Dosage: 300 DOSE

REACTIONS (2)
  - Hospitalisation [Not Recovered/Not Resolved]
  - Product use issue [Unknown]

NARRATIVE: CASE EVENT DATE: 20220101
